FAERS Safety Report 9292954 (Version 1)
Quarter: 2013Q2

REPORT INFORMATION
  Report Type: Spontaneous
  Country: US (occurrence: US)
  Receive Date: 20130516
  Receipt Date: 20130516
  Transmission Date: 20140414
  Serious: No
  Sender: FDA-Public Use
  Company Number: US-009507513-1305USA009970

PATIENT
  Age: 37 Year
  Sex: Male

DRUGS (1)
  1. CLARITIN REDITABS [Suspect]
     Indication: NASOPHARYNGITIS
     Dosage: 10 MG, TID
     Route: 048
     Dates: start: 20130429

REACTIONS (4)
  - Overdose [Recovering/Resolving]
  - Inappropriate schedule of drug administration [Recovering/Resolving]
  - Off label use [Unknown]
  - No adverse event [Unknown]
